FAERS Safety Report 25905924 (Version 1)
Quarter: 2025Q4

REPORT INFORMATION
  Report Type: Spontaneous
  Country: US (occurrence: US)
  Receive Date: 20251010
  Receipt Date: 20251010
  Transmission Date: 20260117
  Serious: No
  Sender: ROCHE
  Company Number: US-ROCHE-10000405740

PATIENT
  Age: 65 Year
  Sex: Female

DRUGS (1)
  1. TECENTRIQ [Suspect]
     Active Substance: ATEZOLIZUMAB
     Indication: Lung neoplasm malignant
     Dosage: NOW 30 MINUTE INFUSIONS
     Route: 042
     Dates: start: 202501

REACTIONS (9)
  - Dry mouth [Not Recovered/Not Resolved]
  - Speech disorder [Not Recovered/Not Resolved]
  - Nasal congestion [Recovered/Resolved]
  - Rash [Unknown]
  - Pruritus [Unknown]
  - Ear congestion [Recovered/Resolved]
  - Upper respiratory tract congestion [Recovered/Resolved]
  - Lower respiratory tract congestion [Recovered/Resolved]
  - Contrast media allergy [Not Recovered/Not Resolved]

NARRATIVE: CASE EVENT DATE: 20250101
